FAERS Safety Report 8906269 (Version 1)
Quarter: 2012Q4

REPORT INFORMATION
  Report Type: Spontaneous
  Country: US (occurrence: None)
  Receive Date: 20121106
  Receipt Date: 20121106
  Transmission Date: 20130627
  Serious: Yes (Death)
  Sender: FDA-Public Use
  Company Number: UTC-024985

PATIENT
  Age: 63 Year
  Sex: Male

DRUGS (12)
  1. REMODULIN (2.5 MILLIGRAM/MILLILITERS, INJECTION FOR INFUSION) (TREPROSTINIL SODIUM) [Suspect]
     Indication: CHRONIC PULMONARY HEART DISEASE
     Dosage: (0.032 ug/kg,1 in 1 min)
     Route: 041
     Dates: start: 20120104
  2. ADCIRCA (TADALAFIL) [Concomitant]
  3. MORPHINE [Concomitant]
  4. LEVOFLOXACIN [Concomitant]
  5. GABAPENTIN [Concomitant]
  6. ASPIRIN (ACETYLSALICYLIC ACID) [Concomitant]
  7. ADVAIR (SERETIDE /01420901/) [Concomitant]
  8. SPIRIVA (TIOTROPIUM BROMIDE) [Concomitant]
  9. FUROSEMIDE [Concomitant]
  10. PANTOPRAZOLE [Concomitant]
  11. CLOPIDOGREL [Concomitant]
  12. METOPROLOL [Concomitant]

REACTIONS (1)
  - Death [None]
